FAERS Safety Report 9900902 (Version 1)
Quarter: 2014Q1

REPORT INFORMATION
  Report Type: Report from Study
  Country: US (occurrence: US)
  Receive Date: 20140217
  Receipt Date: 20140217
  Transmission Date: 20141002
  Serious: No
  Sender: FDA-Public Use
  Company Number: US-ABBVIE-13P-163-1072745-00

PATIENT
  Age: 53 Year
  Sex: Male
  Weight: 107.14 kg

DRUGS (4)
  1. SIMCOR 500/40 [Suspect]
     Indication: BLOOD TRIGLYCERIDES INCREASED
     Dosage: 250/20 MG AT BEDTIME BY CUTTING PILL IN HALF
     Dates: start: 201211
  2. SYNTHROID [Concomitant]
     Indication: PRODUCT USED FOR UNKNOWN INDICATION
  3. NAPROXEN [Concomitant]
     Indication: PRODUCT USED FOR UNKNOWN INDICATION
  4. TYLENOL [Concomitant]
     Indication: PRODUCT USED FOR UNKNOWN INDICATION

REACTIONS (2)
  - Skin fissures [Not Recovered/Not Resolved]
  - Wrong technique in drug usage process [Unknown]
